FAERS Safety Report 26148705 (Version 1)
Quarter: 2025Q4

REPORT INFORMATION
  Report Type: Spontaneous
  Country: US (occurrence: US)
  Receive Date: 20251212
  Receipt Date: 20251212
  Transmission Date: 20260117
  Serious: Yes (Other)
  Sender: AMNEAL
  Company Number: US-AMNEAL PHARMACEUTICALS-2025-AMRX-04754

PATIENT
  Age: 75 Year
  Sex: Female

DRUGS (1)
  1. ALYMSYS [Suspect]
     Active Substance: BEVACIZUMAB-MALY
     Indication: Colon cancer metastatic
     Dosage: UNK
     Route: 065

REACTIONS (2)
  - Hypothyroidism [Recovering/Resolving]
  - Hypercholesterolaemia [Recovering/Resolving]
